FAERS Safety Report 8214551-5 (Version None)
Quarter: 2012Q1

REPORT INFORMATION
  Report Type: 
  Country: None (occurrence: None)
  Receive Date: 20120228
  Receipt Date: 20110105
  Transmission Date: 20120608
  Serious: Yes (Death)
  Sender: FDA-Public Use
  Company Number: RB-20353-2011

PATIENT
  Sex: Female

DRUGS (5)
  1. SUBOXONE [Suspect]
     Indication: DRUG DEPENDENCE
     Dosage: SEE IMAGE
     Dates: start: 20101221, end: 20110101
  2. SUBOXONE [Suspect]
     Indication: DRUG DEPENDENCE
     Dosage: SEE IMAGE
     Dates: start: 20100901, end: 20101220
  3. SUBOXONE [Suspect]
     Indication: DRUG DEPENDENCE
     Dosage: SEE IMAGE
     Dates: start: 20100202, end: 20100901
  4. SUBOXONE [Suspect]
     Indication: DRUG DEPENDENCE
     Dosage: SEE IMAGE
     Dates: start: 20080101, end: 20100201
  5. KLONOPIN [Suspect]
     Indication: PANIC DISORDER
     Dosage: (USED 2 MG THREE TIMES DAILY AS NEEDED ORAL)
     Route: 048
     Dates: end: 20110101

REACTIONS (2)
  - OVERDOSE [None]
  - SUBSTANCE ABUSE [None]
